FAERS Safety Report 26117307 (Version 1)
Quarter: 2025Q4

REPORT INFORMATION
  Report Type: Spontaneous
  Country: US (occurrence: None)
  Receive Date: 20251203
  Receipt Date: 20251203
  Transmission Date: 20260118
  Serious: Yes (Death)
  Sender: FDA-CTU
  Company Number: None

PATIENT
  Age: 73 Year
  Sex: Male

DRUGS (4)
  1. LENALIDOMIDE [Suspect]
     Active Substance: LENALIDOMIDE
     Indication: Plasma cell myeloma
     Dosage: OTHER FREQUENCY : 1 TIME A DAY FOR 21 DAYS ON THEN 7 DAYS OFF;?
     Route: 048
     Dates: start: 20220714
  2. POMALYST [Suspect]
     Active Substance: POMALIDOMIDE
  3. LENALIDOMIDE [Concomitant]
     Active Substance: LENALIDOMIDE
  4. REVLIMID [Suspect]
     Active Substance: LENALIDOMIDE

REACTIONS (1)
  - Death [None]

NARRATIVE: CASE EVENT DATE: 20251124
